FAERS Safety Report 14526161 (Version 1)
Quarter: 2018Q1

REPORT INFORMATION
  Report Type: Spontaneous
  Country: DK (occurrence: DK)
  Receive Date: 20180213
  Receipt Date: 20180213
  Transmission Date: 20180509
  Serious: Yes (Other)
  Sender: FDA-Public Use
  Company Number: DK-PFIZER INC-2018058532

PATIENT
  Age: 55 Year
  Sex: Female
  Weight: 60 kg

DRUGS (3)
  1. TRAMADOL RETARD ^HEXAL^ [Concomitant]
     Active Substance: TRAMADOL
     Indication: PAIN
     Dosage: 300 MG, 1X/DAY
     Route: 048
     Dates: start: 20121123
  2. GABARATIO [Interacting]
     Active Substance: GABAPENTIN
     Indication: FIBROMYALGIA
     Dosage: 1200 MG, 1X/DAY
     Route: 048
     Dates: start: 20150418
  3. DEPO-MEDROL [Suspect]
     Active Substance: METHYLPREDNISOLONE ACETATE
     Indication: TENDONITIS
     Dosage: UNK
     Route: 030
     Dates: start: 20171206

REACTIONS (7)
  - Suicidal ideation [Recovered/Resolved]
  - Memory impairment [Not Recovered/Not Resolved]
  - Impaired work ability [Unknown]
  - Loss of personal independence in daily activities [Not Recovered/Not Resolved]
  - Mental disorder [Not Recovered/Not Resolved]
  - Drug interaction [Unknown]
  - Impaired driving ability [Unknown]

NARRATIVE: CASE EVENT DATE: 20171206
